FAERS Safety Report 14985805 (Version 2)
Quarter: 2018Q3

REPORT INFORMATION
  Report Type: Spontaneous
  Country: US (occurrence: US)
  Receive Date: 20180607
  Receipt Date: 20180706
  Transmission Date: 20181010
  Serious: No
  Sender: FDA-Public Use
  Company Number: US-009507513-1806USA001706

PATIENT

DRUGS (2)
  1. PROVENTIL [Suspect]
     Active Substance: ALBUTEROL
     Indication: WHEEZING
     Dosage: 1?2 PUFFS, EVERY 4 ?6 HOURS
     Route: 055
     Dates: start: 20180608
  2. PROVENTIL [Suspect]
     Active Substance: ALBUTEROL
     Indication: COUGH
     Dosage: 1?2 PUFFS, EVERY 4 ?6 HOURS
     Route: 055
     Dates: start: 20180602

REACTIONS (6)
  - Product design confusion [Recovered/Resolved]
  - Product use in unapproved indication [Unknown]
  - Product availability issue [Recovered/Resolved]
  - Drug dose omission [Unknown]
  - No adverse event [Unknown]
  - Underdose [Unknown]

NARRATIVE: CASE EVENT DATE: 20180602
